FAERS Safety Report 4677660-3 (Version None)
Quarter: 2005Q2

REPORT INFORMATION
  Report Type: 
  Country: None (occurrence: None)
  Receive Date: 20050531
  Receipt Date: 20050519
  Transmission Date: 20051028
  Serious: Yes (Other)
  Sender: FDA-Public Use
  Company Number: US-BRISTOL-MYERS SQUIBB COMPANY-12981213

PATIENT
  Age: 58 Year
  Sex: Male

DRUGS (8)
  1. SERZONE [Suspect]
  2. THIOTHIXENE [Concomitant]
  3. NORTRIPTYLINE [Concomitant]
  4. LORCET-HD [Concomitant]
  5. SENOKOT [Concomitant]
  6. DIAZEPAM [Concomitant]
  7. AMITRIPTYLINE HCL [Concomitant]
  8. CHLORAL HYDRATE [Concomitant]

REACTIONS (7)
  - CRYPTOGENIC CIRRHOSIS [None]
  - HEPATIC ENZYME INCREASED [None]
  - HEPATIC STEATOSIS [None]
  - HEPATITIS C [None]
  - HIATUS HERNIA [None]
  - PORTAL HYPERTENSIVE GASTROPATHY [None]
  - VARICES OESOPHAGEAL [None]
